FAERS Safety Report 23618473 (Version 2)
Quarter: 2024Q1

REPORT INFORMATION
  Report Type: Other
  Country: US (occurrence: US)
  Receive Date: 20240311
  Receipt Date: 20240325
  Transmission Date: 20240410
  Serious: Yes (Hospitalization, Other)
  Sender: FDA-Public Use
  Company Number: US-TRAVERE-2024TVT00223

PATIENT
  Sex: Female

DRUGS (7)
  1. FILSPARI [Suspect]
     Active Substance: SPARSENTAN
     Indication: IgA nephropathy
     Route: 048
  2. JARDIANCE [Concomitant]
     Active Substance: EMPAGLIFLOZIN
  3. ROSUVASTATIN [Concomitant]
     Active Substance: ROSUVASTATIN
  4. HYDROCHLOROTHIAZIDE [Concomitant]
     Active Substance: HYDROCHLOROTHIAZIDE
  5. METOPROLOL [Concomitant]
     Active Substance: METOPROLOL
  6. NIFEDIPINE [Concomitant]
     Active Substance: NIFEDIPINE
  7. LASIX [Concomitant]
     Active Substance: FUROSEMIDE

REACTIONS (3)
  - Renal impairment [Recovered/Resolved]
  - Gastroenteritis [Recovered/Resolved]
  - Blood potassium increased [Recovered/Resolved]
